FAERS Safety Report 9414477 (Version 1)
Quarter: 2013Q3

REPORT INFORMATION
  Report Type: Spontaneous
  Country: JP (occurrence: None)
  Receive Date: 20130717
  Receipt Date: 20130717
  Transmission Date: 20140515
  Serious: Yes (Life-Threatening)
  Sender: FDA-Public Use
  Company Number: TPA2013A06816

PATIENT
  Age: 63 Year
  Sex: Male

DRUGS (5)
  1. FEBURIC (FEBUXOSTAT) [Suspect]
     Indication: HYPERURICAEMIA
     Dosage: 20MG (20MG, 1 IN 1D) ORAL
     Route: 048
     Dates: start: 20120831
  2. OLMETEC (OLMESARTAN MEDOXOMIL) [Concomitant]
  3. CARVEDILOL (CARVEDILOL) [Concomitant]
  4. GASMOTIN (MOSAPRIDE CITRATE) [Concomitant]
  5. FLUITRAN (TRICHLORMETHIAZIDE) [Concomitant]

REACTIONS (1)
  - Cerebral haemorrhage [None]
